FAERS Safety Report 4814921-9 (Version None)
Quarter: 2005Q4

REPORT INFORMATION
  Report Type: 
  Country: None (occurrence: None)
  Receive Date: 20051028
  Receipt Date: 20051018
  Transmission Date: 20060501
  Serious: Yes (Other)
  Sender: FDA-Public Use
  Company Number: US-BRISTOL-MYERS SQUIBB COMPANY-13150404

PATIENT
  Age: 48 Year
  Sex: Male
  Weight: 46 kg

DRUGS (9)
  1. ATAZANAVIR [Suspect]
     Indication: HIV INFECTION
     Route: 048
     Dates: start: 20050922, end: 20051006
  2. POSACONAZOLE [Suspect]
     Indication: OESOPHAGITIS
     Route: 048
     Dates: start: 20050920, end: 20051006
  3. RITONAVIR [Suspect]
     Indication: HIV INFECTION
     Route: 048
     Dates: start: 20050922
  4. ABACAVIR SULFATE [Suspect]
     Indication: HIV INFECTION
     Route: 048
     Dates: start: 20050929
  5. MIRTAZAPINE [Suspect]
     Indication: DEPRESSION
     Route: 048
     Dates: start: 20050928
  6. AZITHROMYCIN [Concomitant]
     Dates: start: 20020717
  7. BACTRIM DS [Concomitant]
     Dates: start: 19870101
  8. EFFEXOR XR [Concomitant]
     Dates: start: 20050107
  9. OXYCONTIN [Concomitant]
     Dates: start: 20050310

REACTIONS (1)
  - BLOOD ALKALINE PHOSPHATASE INCREASED [None]
